FAERS Safety Report 6609885-1 (Version None)
Quarter: 2010Q1

REPORT INFORMATION
  Report Type: 
  Country: None (occurrence: None)
  Receive Date: 20100302
  Receipt Date: 20100224
  Transmission Date: 20100710
  Serious: Yes (Hospitalization)
  Sender: FDA-Public Use
  Company Number: PHHY2009US54412

PATIENT
  Sex: Female

DRUGS (15)
  1. TASIGNA [Suspect]
     Indication: CHRONIC MYELOID LEUKAEMIA
     Dosage: 400 MG, BID
     Route: 048
     Dates: start: 20090412
  2. TASIGNA [Suspect]
     Dosage: 400 MG, BID
  3. FLUCONAZOLE [Suspect]
     Dosage: 150 MG, BID
     Route: 048
     Dates: start: 20001013
  4. ANALGESICS [Concomitant]
     Indication: NECK PAIN
     Route: 048
  5. UNSPECIFIED MEDICATION FOR BIPOLAR [Concomitant]
     Indication: BIPOLAR DISORDER
     Dosage: DAILY, UNK
  6. ALBUTEROL [Concomitant]
     Dosage: UNK
  7. PROTONIX [Concomitant]
     Dosage: 40 MG, DAILY
  8. LEXAPRO [Concomitant]
     Dosage: 20 MG, DAILY
  9. PERCOCET [Concomitant]
     Dosage: 7.2/325 EVERY 6 HOURS AS NEEDED
  10. MONTELUKAST [Concomitant]
     Dosage: 10 MG, DAILY
  11. ADVAIR DISKUS 100/50 [Concomitant]
     Dosage: 250 MCG/50 MCG BID
  12. FENTANYL-100 [Concomitant]
     Dosage: 800 UG, Q2H PRN PAIN
  13. DIAZEPAM [Concomitant]
     Dosage: 10 MG, QID PRN
  14. KEPPRA [Concomitant]
     Dosage: 500 MG, BID
  15. SEROQUEL [Concomitant]
     Dosage: 300 MG, QHS

REACTIONS (4)
  - DIABETES MELLITUS [None]
  - PNEUMONIA [None]
  - PYREXIA [None]
  - RASH [None]
